FAERS Safety Report 18193310 (Version 1)
Quarter: 2020Q3

REPORT INFORMATION
  Report Type: Spontaneous
  Country: US (occurrence: US)
  Receive Date: 20200825
  Receipt Date: 20200825
  Transmission Date: 20201103
  Serious: No
  Sender: FDA-Public Use
  Company Number: US-BAYER-2020-176642

PATIENT
  Sex: Female

DRUGS (1)
  1. MIRALAX [Suspect]
     Active Substance: POLYETHYLENE GLYCOL 3350
     Indication: GASTROINTESTINAL DISORDER
     Dosage: USED ACCORDING TO LABLED DIRECTIONS DOSE
     Route: 048
     Dates: start: 20200821, end: 20200821

REACTIONS (2)
  - Abdominal pain upper [Recovered/Resolved]
  - Illness [Unknown]
